FAERS Safety Report 5780374-X (Version None)
Quarter: 2008Q2

REPORT INFORMATION
  Report Type: 
  Country: None (occurrence: None)
  Receive Date: 20080620
  Receipt Date: 20080610
  Transmission Date: 20081010
  Serious: Yes (Other)
  Sender: FDA-Public Use
  Company Number: US-ROCHE-521385

PATIENT
  Sex: Male
  Weight: 81.6 kg

DRUGS (4)
  1. ACCUTANE [Suspect]
     Indication: ACNE
     Route: 048
     Dates: start: 19840112, end: 19840603
  2. PREDNISONE TAB [Suspect]
     Indication: CROHN'S DISEASE
     Route: 065
  3. PURINETHOL [Suspect]
     Indication: CROHN'S DISEASE
     Route: 065
  4. BONIVA [Concomitant]
     Indication: OSTEOPOROSIS
     Dates: start: 20060605

REACTIONS (5)
  - ANAEMIA MACROCYTIC [None]
  - COLITIS ULCERATIVE [None]
  - CROHN'S DISEASE [None]
  - INFLAMMATORY BOWEL DISEASE [None]
  - OSTEOPOROSIS [None]
